FAERS Safety Report 8012138-0 (Version None)
Quarter: 2011Q4

REPORT INFORMATION
  Report Type: 
  Country: None (occurrence: None)
  Receive Date: 20111228
  Receipt Date: 20111222
  Transmission Date: 20120403
  Serious: Yes (Other)
  Sender: FDA-Public Use
  Company Number: GB-PFIZER INC-2011312345

PATIENT
  Age: 78 Year
  Sex: Female

DRUGS (10)
  1. PRIMIDONE [Concomitant]
     Dosage: 250 MG, UNK
  2. CALCIUM [Concomitant]
  3. DOXYCYCLINE [Concomitant]
     Dosage: 100 MG, UNK
  4. RANITIDINE [Concomitant]
     Dosage: 150 MG, UNK
  5. CHLORAMPHENICOL SODIUM SUCCINATE [Suspect]
     Indication: BLEPHARITIS
     Dosage: UNK
     Route: 047
     Dates: start: 20111206, end: 20111206
  6. ACETYLSALICYLIC ACID [Concomitant]
  7. CARMELLOSE [Concomitant]
  8. PROPRANOLOL [Concomitant]
     Dosage: 10 MG, UNK
  9. PHENOBARBITAL TAB [Concomitant]
     Dosage: 30 MG, UNK
  10. DIAZEPAM [Concomitant]
     Dosage: 2 MG, UNK

REACTIONS (3)
  - VISION BLURRED [None]
  - OCULAR HYPERAEMIA [None]
  - EYELID OEDEMA [None]
